FAERS Safety Report 15401629 (Version 4)
Quarter: 2018Q4

REPORT INFORMATION
  Report Type: Spontaneous
  Country: US (occurrence: US)
  Receive Date: 20180919
  Receipt Date: 20181206
  Transmission Date: 20190204
  Serious: Yes (Hospitalization)
  Sender: FDA-Public Use
  Company Number: US-PFIZER INC-2018376728

PATIENT
  Age: 68 Year
  Sex: Male
  Weight: 97 kg

DRUGS (2)
  1. SUTENT [Suspect]
     Active Substance: SUNITINIB MALATE
     Indication: RENAL CANCER METASTATIC
     Dosage: 50 MG, CYCLIC (D1-28 Q42 DAYS)
     Route: 048
     Dates: start: 20180906, end: 2018
  2. METFORMIN [Concomitant]
     Active Substance: METFORMIN HYDROCHLORIDE
     Dosage: UNK

REACTIONS (14)
  - Asthenia [Unknown]
  - Dysphagia [Unknown]
  - Fatigue [Unknown]
  - White blood cell count decreased [Unknown]
  - Contusion [Unknown]
  - Platelet count decreased [Unknown]
  - Diarrhoea [Unknown]
  - Oral infection [Unknown]
  - Fall [Unknown]
  - Hiccups [Unknown]
  - Joint injury [Unknown]
  - Septic shock [Unknown]
  - Oral mucosal blistering [Unknown]
  - Tooth infection [Unknown]

NARRATIVE: CASE EVENT DATE: 2018
